FAERS Safety Report 8068610 (Version 3)
Quarter: 2013Q3

REPORT INFORMATION
  Report Type: Report from Study
  Country: CA (occurrence: CA)
  Receive Date: 20110804
  Receipt Date: 20130715
  Transmission Date: 20140515
  Serious: Yes (Hospitalization)
  Sender: FDA-Public Use
  Company Number: CA-BRISTOL-MYERS SQUIBB COMPANY-15936412

PATIENT
  Age: 47 Year
  Sex: Female

DRUGS (5)
  1. SAXAGLIPTIN [Suspect]
     Indication: TYPE 2 DIABETES MELLITUS
     Dosage: LAST DOSE ON 05JUL2011
     Dates: start: 20110328, end: 20110705
  2. METFORMIN HCL [Suspect]
     Indication: TYPE 2 DIABETES MELLITUS
  3. GLYBURIDE [Suspect]
     Indication: TYPE 2 DIABETES MELLITUS
  4. GABAPENTIN [Suspect]
  5. ASPIRIN [Concomitant]
     Dosage: ASPIRIN ={100?ASPIRIN =}100
     Dates: start: 20110628

REACTIONS (4)
  - Urosepsis [Recovered/Resolved]
  - Escherichia test positive [None]
  - Opportunistic infection [None]
  - Toxicity to various agents [None]
